FAERS Safety Report 14412633 (Version 3)
Quarter: 2018Q1

REPORT INFORMATION
  Report Type: Spontaneous
  Country: JP (occurrence: JP)
  Receive Date: 20180119
  Receipt Date: 20180221
  Transmission Date: 20180509
  Serious: Yes (Death, Hospitalization)
  Sender: FDA-Public Use
  Company Number: JP-ELI_LILLY_AND_COMPANY-JP201801005885

PATIENT
  Age: 77 Year
  Sex: Male
  Weight: 64 kg

DRUGS (7)
  1. CYRAMZA [Suspect]
     Active Substance: RAMUCIRUMAB
     Indication: LUNG ADENOCARCINOMA STAGE II
     Dosage: 500 MG, CYCLICAL
     Route: 065
     Dates: start: 20171024, end: 20171024
  2. NOVOLIN N [Concomitant]
     Active Substance: INSULIN HUMAN
     Indication: DIABETES MELLITUS
     Dosage: UNK
     Route: 058
  3. NOVORAPID [Concomitant]
     Active Substance: INSULIN ASPART
     Indication: DIABETES MELLITUS
     Dosage: UNK
     Route: 058
  4. DOCETAXEL. [Concomitant]
     Active Substance: DOCETAXEL
     Dosage: 60 MG, CYCLICAL
     Route: 065
     Dates: start: 20171115, end: 20171206
  5. RABEPRAZOLE                        /01417202/ [Concomitant]
     Active Substance: RABEPRAZOLE SODIUM
     Dosage: 10 MG, DAILY
     Route: 048
  6. DOCETAXEL. [Concomitant]
     Active Substance: DOCETAXEL
     Indication: LUNG ADENOCARCINOMA STAGE II
     Dosage: 75 MG, CYCLICAL
     Route: 065
     Dates: start: 20171024, end: 20171024
  7. CYRAMZA [Suspect]
     Active Substance: RAMUCIRUMAB
     Dosage: 400 MG, CYCLICAL
     Route: 065
     Dates: start: 20171115, end: 20171206

REACTIONS (2)
  - Acute kidney injury [Fatal]
  - Gastrointestinal haemorrhage [Fatal]

NARRATIVE: CASE EVENT DATE: 20180104
